FAERS Safety Report 19966460 (Version 1)
Quarter: 2021Q4

REPORT INFORMATION
  Report Type: Report from Study
  Country: US (occurrence: US)
  Receive Date: 20211019
  Receipt Date: 20211019
  Transmission Date: 20220303
  Serious: No
  Sender: FDA-Public Use
  Company Number: US-BIOVITRUM-2021US7578

PATIENT
  Age: 24 Year
  Sex: Female

DRUGS (12)
  1. KINERET [Suspect]
     Active Substance: ANAKINRA
     Indication: Haemophagocytic lymphohistiocytosis
     Route: 058
     Dates: start: 20210730
  2. FOLIC ACID [Concomitant]
     Active Substance: FOLIC ACID
  3. DAPSOM [Concomitant]
  4. CALCIUM [Concomitant]
     Active Substance: CALCIUM
  5. SEROQUEL [Concomitant]
     Active Substance: QUETIAPINE FUMARATE
  6. CLONAZEPAM [Concomitant]
     Active Substance: CLONAZEPAM
  7. VITAMIN D [Concomitant]
     Active Substance: VITAMIN D NOS
  8. PREVACID [Concomitant]
     Active Substance: LANSOPRAZOLE
  9. MELATONIN [Concomitant]
     Active Substance: MELATONIN
  10. SENOKOT [Concomitant]
     Active Substance: SENNOSIDES
  11. CARVEDILOL [Concomitant]
     Active Substance: CARVEDILOL
  12. PREDNISONE [Concomitant]
     Active Substance: PREDNISONE

REACTIONS (2)
  - Injection site pain [Unknown]
  - Off label use [Unknown]

NARRATIVE: CASE EVENT DATE: 20210730
